FAERS Safety Report 7318906-2 (Version None)
Quarter: 2011Q1

REPORT INFORMATION
  Report Type: 
  Country: None (occurrence: None)
  Receive Date: 20110228
  Receipt Date: 20110217
  Transmission Date: 20110831
  Serious: Yes (Other)
  Sender: FDA-Public Use
  Company Number: US-ELI_LILLY_AND_COMPANY-US201102005462

PATIENT
  Age: 14 Year
  Sex: Male

DRUGS (2)
  1. HUMATROPE [Suspect]
     Indication: GROWTH RETARDATION
     Dosage: 2 MG, 6/W
     Dates: start: 20061001, end: 20080701
  2. INCRELEX [Concomitant]

REACTIONS (1)
  - CHRONIC MYELOMONOCYTIC LEUKAEMIA [None]
